FAERS Safety Report 5132305-3 (Version None)
Quarter: 2006Q4

REPORT INFORMATION
  Report Type: 
  Country: None (occurrence: None)
  Receive Date: 20061020
  Receipt Date: 20061020
  Transmission Date: 20070319
  Serious: Yes (Life-Threatening, Hospitalization)
  Sender: FDA-Public Use
  Company Number: None

PATIENT
  Age: 28 Year
  Sex: Male
  Weight: 88.5 kg

DRUGS (2)
  1. DAPSONE [Suspect]
     Indication: DERMATITIS HERPETIFORMIS
     Dosage: 100MG BID PO
     Route: 048
     Dates: start: 20060828, end: 20060927
  2. METHYLPREDNISOLONE 4MG TAB [Concomitant]

REACTIONS (2)
  - ANAEMIA [None]
  - LEUKOPENIA [None]
